FAERS Safety Report 9481731 (Version 1)
Quarter: 2013Q3

REPORT INFORMATION
  Report Type: Spontaneous
  Country: US (occurrence: US)
  Receive Date: 20130828
  Receipt Date: 20130828
  Transmission Date: 20140515
  Serious: Yes (Other)
  Sender: FDA-Public Use
  Company Number: US-AMGEN-KDL224106

PATIENT
  Age: 56 Year
  Sex: Female

DRUGS (2)
  1. ENBREL [Suspect]
     Indication: RHEUMATOID ARTHRITIS
     Dosage: 50 MG, QWK
     Route: 058
     Dates: start: 20070101
  2. PREDNISONE [Concomitant]

REACTIONS (4)
  - Hepatitis C [Not Recovered/Not Resolved]
  - Injection site pain [Unknown]
  - Abnormal weight gain [Unknown]
  - Injection site bruising [Unknown]
